FAERS Safety Report 9549461 (Version 1)
Quarter: 2013Q3

REPORT INFORMATION
  Report Type: Report from Study
  Country: CA (occurrence: CA)
  Receive Date: 20130924
  Receipt Date: 20130924
  Transmission Date: 20140515
  Serious: Yes (Hospitalization)
  Sender: FDA-Public Use
  Company Number: CA-ABBVIE-13P-028-1149402-00

PATIENT
  Sex: Female
  Weight: 60.38 kg

DRUGS (11)
  1. HUMIRA [Suspect]
     Indication: CROHN^S DISEASE
     Route: 058
     Dates: start: 20081117, end: 2013
  2. HUMIRA [Suspect]
     Dosage: ONCE
     Route: 058
     Dates: start: 201306, end: 201306
  3. OXYCOCET [Concomitant]
     Indication: PAIN MANAGEMENT
     Dosage: 5 MG /325 MG
     Route: 048
     Dates: start: 2009
  4. BACLOFEN [Concomitant]
     Indication: BACK PAIN
     Route: 048
     Dates: start: 2012
  5. AZATHIOPRINE [Concomitant]
     Indication: INFLAMMATION
     Route: 048
     Dates: start: 2002
  6. FENTANYL [Concomitant]
     Indication: PAIN MANAGEMENT
     Dosage: 50MCG / HOUR; PATCH
     Route: 062
     Dates: start: 2013
  7. DIAZEPAM [Concomitant]
     Indication: ANXIETY
     Route: 048
     Dates: start: 2009
  8. CITALOPRAM [Concomitant]
     Indication: DEPRESSION
     Route: 048
     Dates: start: 2012
  9. ZOPICLONE [Concomitant]
     Indication: INSOMNIA
     Route: 048
     Dates: start: 2011
  10. LYRICA [Concomitant]
     Indication: BACK PAIN
     Route: 048
     Dates: start: 2013
  11. ENTOCORT [Concomitant]
     Indication: CROHN^S DISEASE
     Route: 048
     Dates: start: 2013

REACTIONS (6)
  - Aphagia [Recovered/Resolved]
  - Crohn^s disease [Recovered/Resolved]
  - Vomiting [Recovered/Resolved]
  - Abdominal pain [Recovered/Resolved]
  - Constipation [Recovered/Resolved]
  - Intestinal obstruction [Recovered/Resolved]
